FAERS Safety Report 6343875-1 (Version None)
Quarter: 2009Q3

REPORT INFORMATION
  Report Type: 
  Country: None (occurrence: None)
  Receive Date: 20090908
  Receipt Date: 20090904
  Transmission Date: 20100115
  Serious: Yes (Death, Other)
  Sender: FDA-Public Use
  Company Number: JP-JNJFOC-20090306742

PATIENT
  Sex: Male

DRUGS (2)
  1. TOPINA [Suspect]
     Indication: EPILEPSY
     Route: 048
  2. ALEVIATIN [Concomitant]
     Indication: EPILEPSY
     Route: 048

REACTIONS (3)
  - HEPATIC FAILURE [None]
  - NEPHROTIC SYNDROME [None]
  - RENAL DISORDER [None]
